FAERS Safety Report 24550336 (Version 8)
Quarter: 2025Q3

REPORT INFORMATION
  Report Type: Spontaneous
  Country: US (occurrence: US)
  Receive Date: 20241025
  Receipt Date: 20250806
  Transmission Date: 20251021
  Serious: Yes (Hospitalization, Other)
  Sender: SUNOVION
  Company Number: US-SMPA-2024SPA004355

PATIENT
  Age: 75 Year
  Sex: Male

DRUGS (2)
  1. ORGOVYX [Suspect]
     Active Substance: RELUGOLIX
     Indication: Prostate cancer
     Dosage: 360 MG, SINGLE
     Route: 048
     Dates: start: 20240717, end: 20240717
  2. ORGOVYX [Suspect]
     Active Substance: RELUGOLIX
     Dosage: 120 MG, QD
     Route: 048
     Dates: start: 20240718

REACTIONS (6)
  - Surgery [Unknown]
  - Retinal detachment [Unknown]
  - Hydrocele [Recovered/Resolved]
  - Facial pain [Recovered/Resolved]
  - Fatigue [Unknown]
  - Hot flush [Unknown]
